FAERS Safety Report 14260916 (Version 1)
Quarter: 2017Q4

REPORT INFORMATION
  Report Type: Spontaneous
  Country: US (occurrence: US)
  Receive Date: 20171207
  Receipt Date: 20171207
  Transmission Date: 20180321
  Serious: Yes (Other)
  Sender: FDA-Public Use
  Company Number: US-TEIKOKU PHARMA USA-TPU2017-00776

PATIENT
  Age: 76 Year
  Sex: Female
  Weight: 52.21 kg

DRUGS (6)
  1. DULOXETINE. [Concomitant]
     Active Substance: DULOXETINE
     Indication: PAIN
     Dates: start: 201610
  2. CALCIUM [Concomitant]
     Active Substance: CALCIUM
  3. LIDOCAINE PATCH [Suspect]
     Active Substance: LIDOCAINE
     Indication: ARTHRITIS
  4. VITAMIN D3 [Concomitant]
     Active Substance: CHOLECALCIFEROL
  5. LIDOCAINE PATCH [Suspect]
     Active Substance: LIDOCAINE
     Indication: PAIN
     Dosage: 12 HOURS ON AND 12 HOURS OFF. SOMETIMES UP TO 3 PATCHES. ORINGINALLY USED THEM ON LEGS FOR BLOOD CLO
     Route: 061
     Dates: start: 20161012
  6. MYRBETRIQ [Concomitant]
     Active Substance: MIRABEGRON
     Indication: URINARY INCONTINENCE

REACTIONS (4)
  - Hip arthroplasty [Unknown]
  - Musculoskeletal pain [Not Recovered/Not Resolved]
  - Incorrect drug administration duration [Unknown]
  - Body height decreased [Not Recovered/Not Resolved]

NARRATIVE: CASE EVENT DATE: 20161026
